FAERS Safety Report 6358520-9 (Version None)
Quarter: 2009Q3

REPORT INFORMATION
  Report Type: 
  Country: None (occurrence: None)
  Receive Date: 20090916
  Receipt Date: 20090910
  Transmission Date: 20100115
  Serious: Yes (Death)
  Sender: FDA-Public Use
  Company Number: GB-WYE-G04107709

PATIENT
  Sex: Female

DRUGS (1)
  1. TEMSIROLIMUS [Suspect]
     Dosage: UNKNOWN
     Dates: start: 20080601, end: 20081201

REACTIONS (2)
  - DEATH [None]
  - DISEASE PROGRESSION [None]
